FAERS Safety Report 5115091-2 (Version None)
Quarter: 2006Q3

REPORT INFORMATION
  Report Type: 
  Country: None (occurrence: None)
  Receive Date: 20060926
  Receipt Date: 20060714
  Transmission Date: 20061208
  Serious: No
  Sender: FDA-Public Use
  Company Number: US-BRISTOL-MYERS SQUIBB COMPANY-13442876

PATIENT
  Sex: Male

DRUGS (1)
  1. BARACLUDE [Suspect]
     Dates: start: 20060110

REACTIONS (2)
  - PAIN [None]
  - TRANSAMINASES INCREASED [None]
